FAERS Safety Report 8711024 (Version 3)
Quarter: 2012Q4

REPORT INFORMATION
  Report Type: Report from Study
  Country: JP (occurrence: JP)
  Receive Date: 20120807
  Receipt Date: 20121214
  Transmission Date: 20130627
  Serious: Yes (Hospitalization)
  Sender: FDA-Public Use
  Company Number: JP-EISAI INC-E7389-02092-CLI-JP

PATIENT
  Age: 62 Year
  Sex: Female
  Weight: 50 kg

DRUGS (15)
  1. HALAVEN [Suspect]
     Indication: BREAST CANCER RECURRENT
     Route: 041
     Dates: start: 20111102, end: 20120308
  2. HALAVEN [Suspect]
     Indication: METASTASES TO LYMPH NODES
  3. HALAVEN [Suspect]
     Indication: METASTASES TO LUNG
  4. HALAVEN [Suspect]
     Indication: METASTASES TO LIVER
  5. HALAVEN [Suspect]
     Indication: METASTASES TO BONE
  6. TATHION [Concomitant]
     Indication: PROPHYLAXIS
     Route: 048
  7. LOXONIN [Concomitant]
     Route: 048
  8. MUCOSTA [Concomitant]
     Route: 048
  9. STROCAIN [Concomitant]
     Route: 048
  10. GASTER [Concomitant]
     Route: 048
  11. TAKEPRON [Concomitant]
     Route: 048
  12. GRANISETRON [Concomitant]
     Indication: PROPHYLAXIS
     Route: 041
  13. DECADRON [Concomitant]
     Indication: PROPHYLAXIS
     Route: 041
  14. ZOMETA [Concomitant]
     Route: 041
  15. LASIX [Concomitant]
     Indication: PROPHYLAXIS
     Route: 048

REACTIONS (5)
  - Blood lactate dehydrogenase increased [Recovered/Resolved]
  - Blood alkaline phosphatase increased [Recovering/Resolving]
  - Aspartate aminotransferase increased [Recovering/Resolving]
  - Febrile neutropenia [Recovering/Resolving]
  - Leukopenia [Recovered/Resolved]
